FAERS Safety Report 9795544 (Version 5)
Quarter: 2014Q2

REPORT INFORMATION
  Report Type: Report from Study
  Country: JP (occurrence: JP)
  Receive Date: 20140103
  Receipt Date: 20140502
  Transmission Date: 20141212
  Serious: Yes (Other)
  Sender: FDA-Public Use
  Company Number: JP-JNJFOC-20131214478

PATIENT
  Age: 76 Year
  Sex: Male
  Weight: 80 kg

DRUGS (8)
  1. STELARA [Suspect]
     Indication: PSORIASIS
     Route: 058
     Dates: start: 20130307, end: 20130307
  2. STELARA [Suspect]
     Indication: PSORIASIS
     Route: 058
     Dates: start: 20130627, end: 20130627
  3. STELARA [Suspect]
     Indication: PSORIASIS
     Route: 058
     Dates: start: 20130919, end: 20130919
  4. STELARA [Suspect]
     Indication: PSORIASIS
     Route: 058
     Dates: start: 20130404, end: 20130404
  5. TALION [Concomitant]
     Indication: PSORIASIS
     Route: 048
     Dates: start: 20121217, end: 20130403
  6. ISCOTIN [Concomitant]
     Indication: PROPHYLAXIS
     Route: 048
     Dates: start: 20130128
  7. TIGASON [Concomitant]
     Indication: PSORIASIS
     Route: 048
     Dates: start: 20130128, end: 20130403
  8. URSO [Concomitant]
     Indication: PROPHYLAXIS
     Route: 048
     Dates: start: 20130128

REACTIONS (2)
  - Interstitial lung disease [Not Recovered/Not Resolved]
  - Aortic aneurysm [Not Recovered/Not Resolved]
